FAERS Safety Report 23178900 (Version 4)
Quarter: 2024Q4

REPORT INFORMATION
  Report Type: Spontaneous
  Country: JP (occurrence: JP)
  Receive Date: 20231113
  Receipt Date: 20241022
  Transmission Date: 20250115
  Serious: Yes (Other)
  Sender: PFIZER
  Company Number: JP-PFIZER INC-PV202300182653

PATIENT
  Age: 29 Year
  Sex: Female

DRUGS (1)
  1. LITFULO [Suspect]
     Active Substance: RITLECITINIB TOSYLATE
     Indication: Diffuse alopecia
     Dosage: 50 MG
     Route: 048
     Dates: start: 20231030, end: 20231102

REACTIONS (2)
  - Erythema multiforme [Unknown]
  - Off label use [Unknown]

NARRATIVE: CASE EVENT DATE: 20231030
